FAERS Safety Report 9167625 (Version 3)
Quarter: 2013Q1

REPORT INFORMATION
  Report Type: Spontaneous
  Country: GB (occurrence: None)
  Receive Date: 20130307
  Receipt Date: 20130319
  Transmission Date: 20140127
  Serious: Yes (Hospitalization)
  Sender: FDA-Public Use
  Company Number: AUR-APL-2013-01860

PATIENT
  Age: 80 Year
  Sex: Male

DRUGS (4)
  1. CLOPIDOGREL (CLOPIDOGREL) [Suspect]
     Indication: CARDIAC DISORDER
     Dosage: UNKNOWN
  2. GLIVEC [Suspect]
     Indication: PRODUCT USED FOR UNKNOWN INDICATION
     Dosage: (400 MG), ORAL
     Route: 048
  3. ASPIRIN (ACETYLSALICYLIC ACID) [Concomitant]
  4. WARFARIN (WARFARIN) [Concomitant]

REACTIONS (4)
  - Anaemia [None]
  - Dyspnoea [None]
  - Cardiac disorder [None]
  - Haemorrhage [None]
